FAERS Safety Report 10038770 (Version 2)
Quarter: 2014Q2

REPORT INFORMATION
  Report Type: Report from Study
  Country: US (occurrence: US)
  Receive Date: 20140326
  Receipt Date: 20140403
  Transmission Date: 20141212
  Serious: Yes (Death, Hospitalization, Other)
  Sender: FDA-Public Use
  Company Number: US-ACTELION-A-CH2014-96380

PATIENT
  Age: 73 Year
  Sex: Female
  Weight: 59.1 kg

DRUGS (15)
  1. BOSENTAN [Suspect]
     Indication: PULMONARY ARTERIAL HYPERTENSION
     Dosage: 125 MG, BID
     Route: 048
     Dates: start: 20131211, end: 20140321
  2. BOSENTAN [Suspect]
     Dosage: 62.5 MG, BID
     Route: 048
     Dates: start: 20131114, end: 20131211
  3. SILDENAFIL [Concomitant]
     Dosage: 20 MG, TID
     Route: 048
     Dates: start: 20081113
  4. LASIX [Concomitant]
     Dosage: 40 MG, QD
     Route: 048
  5. LASIX [Concomitant]
     Dosage: 40 MG, BID
  6. DOXYCYCLINE [Concomitant]
     Dosage: 75 MG, QD
     Route: 048
  7. HYDROXYCHLOROQUINE [Concomitant]
     Dosage: 300 MG, QD
     Route: 048
  8. CALCIUM VITAMIN D [Concomitant]
     Route: 048
  9. MULTIVITAMIN [Concomitant]
  10. OMEGA 3 [Concomitant]
     Route: 048
  11. PANTOPRAZOLE [Concomitant]
     Dosage: 40 MG, QD
     Route: 048
  12. POTASSIUM CHLORIDE [Concomitant]
     Dosage: UNK
     Route: 048
  13. REQUIP [Concomitant]
     Dosage: 2 MG, UNK
     Route: 048
  14. ZOCOR [Concomitant]
     Dosage: 40 MG, QD
     Route: 048
  15. ACETAMINOPHEN W/HYDROCODONE [Concomitant]

REACTIONS (15)
  - Pulmonary arterial hypertension [Fatal]
  - Hypotension [Fatal]
  - Fluid overload [Not Recovered/Not Resolved]
  - Renal failure acute [Not Recovered/Not Resolved]
  - Right ventricular failure [Fatal]
  - Cardiogenic shock [Fatal]
  - Hypoxia [Fatal]
  - Head discomfort [Fatal]
  - Dizziness [Fatal]
  - Oedema peripheral [Not Recovered/Not Resolved]
  - Pain in extremity [Not Recovered/Not Resolved]
  - Dyspnoea exertional [Not Recovered/Not Resolved]
  - Blood creatinine increased [Not Recovered/Not Resolved]
  - Weight increased [Not Recovered/Not Resolved]
  - Brain natriuretic peptide increased [Fatal]
